FAERS Safety Report 18402122 (Version 6)
Quarter: 2021Q1

REPORT INFORMATION
  Report Type: Report from Study
  Country: US (occurrence: US)
  Receive Date: 20201019
  Receipt Date: 20210316
  Transmission Date: 20210419
  Serious: Yes (Hospitalization)
  Sender: FDA-Public Use
  Company Number: NVSC2020US275994

PATIENT
  Age: 9 Year
  Sex: Female
  Weight: 32.65 kg

DRUGS (6)
  1. TREPROSTINIL. [Suspect]
     Active Substance: TREPROSTINIL
     Dosage: UNK UNK, CONT (55 NG/KG/MIN)
     Route: 042
  2. TREPROSTINIL. [Suspect]
     Active Substance: TREPROSTINIL
     Dosage: UNK
     Route: 065
  3. TREPROSTINIL. [Suspect]
     Active Substance: TREPROSTINIL
     Dosage: UNK UNK, CONT (103 NG/KG/MIN)
     Route: 042
  4. TREPROSTINIL. [Suspect]
     Active Substance: TREPROSTINIL
     Dosage: UNK UNK, CONT (79 NG/KG/MIN)
     Route: 042
  5. SILDENAFIL CITRATE. [Concomitant]
     Active Substance: SILDENAFIL CITRATE
     Indication: PRODUCT USED FOR UNKNOWN INDICATION
     Dosage: UNK
     Route: 065
  6. TREPROSTINIL. [Suspect]
     Active Substance: TREPROSTINIL
     Indication: PULMONARY ARTERIAL HYPERTENSION
     Dosage: UNK UNK, CONT (52 NG/KG/MIN)
     Route: 042
     Dates: start: 20200924

REACTIONS (8)
  - Infection [Unknown]
  - Wound [Unknown]
  - Staphylococcal infection [Unknown]
  - Vision blurred [Unknown]
  - Oxygen saturation [Unknown]
  - Vascular device infection [Unknown]
  - Staphylococcus test positive [Unknown]
  - Pyrexia [Unknown]

NARRATIVE: CASE EVENT DATE: 20201102
